FAERS Safety Report 18346258 (Version 1)
Quarter: 2020Q4

REPORT INFORMATION
  Report Type: Spontaneous
  Country: CA (occurrence: CA)
  Receive Date: 20201005
  Receipt Date: 20201005
  Transmission Date: 20210114
  Serious: Yes (Hospitalization)
  Sender: FDA-Public Use
  Company Number: CA-JNJFOC-20200948213

PATIENT
  Age: 41 Year
  Sex: Male

DRUGS (2)
  1. BUDESONIDE. [Concomitant]
     Active Substance: BUDESONIDE
     Route: 065
  2. INFLIXIMAB, RECOMBINANT [Suspect]
     Active Substance: INFLIXIMAB
     Indication: CROHN^S DISEASE
     Route: 042

REACTIONS (12)
  - Incorrect dose administered [Unknown]
  - Poor venous access [Unknown]
  - Feeling abnormal [Unknown]
  - Intentional product use issue [Unknown]
  - Muscle spasms [Unknown]
  - Condition aggravated [Unknown]
  - Heart rate decreased [Unknown]
  - Nasopharyngitis [Unknown]
  - Asthenia [Unknown]
  - Off label use [Unknown]
  - Pain [Unknown]
  - Inappropriate schedule of product administration [Unknown]
